FAERS Safety Report 7314118-7 (Version None)
Quarter: 2011Q1

REPORT INFORMATION
  Report Type: 
  Country: None (occurrence: None)
  Receive Date: 20110225
  Receipt Date: 20100521
  Transmission Date: 20110831
  Serious: Yes (Other)
  Sender: FDA-Public Use
  Company Number: US-MYLANLABS-2010S1008135

PATIENT
  Age: 27 Year
  Sex: Female

DRUGS (4)
  1. NUVARING [Concomitant]
  2. AMNESTEEM [Suspect]
     Route: 048
     Dates: start: 20100301, end: 20100401
  3. AMNESTEEM [Suspect]
     Indication: ACNE
     Route: 048
     Dates: start: 20100218, end: 20100301
  4. LEXAPRO [Concomitant]

REACTIONS (4)
  - ARTHRALGIA [None]
  - FATIGUE [None]
  - NIGHT BLINDNESS [None]
  - BACK PAIN [None]
